FAERS Safety Report 10167211 (Version 1)
Quarter: 2014Q2

REPORT INFORMATION
  Report Type: Spontaneous
  Country: US (occurrence: US)
  Receive Date: 20140512
  Receipt Date: 20140512
  Transmission Date: 20141212
  Serious: No
  Sender: FDA-Public Use
  Company Number: US-PFIZER INC-2014129294

PATIENT
  Age: 69 Year
  Sex: Male
  Weight: 95.24 kg

DRUGS (4)
  1. CELECOXIB [Suspect]
     Indication: PAIN
     Dosage: UNK
  2. CELECOXIB [Suspect]
     Indication: SWELLING
  3. LISINOPRIL W/HYDROCHLOROTHIAZIDE [Concomitant]
     Indication: HYPERTENSION
     Dosage: 10/12.5 MG
  4. LOVASTATIN [Concomitant]
     Indication: BLOOD CHOLESTEROL ABNORMAL
     Dosage: 40 MG, DAILY

REACTIONS (1)
  - Balance disorder [Unknown]
